FAERS Safety Report 21573691 (Version 2)
Quarter: 2023Q1

REPORT INFORMATION
  Report Type: Report from Study
  Country: US (occurrence: US)
  Receive Date: 20221109
  Receipt Date: 20230321
  Transmission Date: 20230418
  Serious: Yes (Other)
  Sender: FDA-Public Use
  Company Number: US-ABBVIE-4190963

PATIENT
  Age: 66 Year
  Sex: Male
  Weight: 79 kg

DRUGS (2)
  1. HUMIRA [Suspect]
     Active Substance: ADALIMUMAB
     Indication: Ankylosing spondylitis
     Dosage: CITRARE FREE     EVERY 6-8 WEEKS
     Route: 058
     Dates: start: 2005
  2. ATORVASTATIN [Concomitant]
     Active Substance: ATORVASTATIN
     Indication: Blood cholesterol
     Dosage: DAILY?FIRST ADMIN- JAN 2020
     Route: 048

REACTIONS (5)
  - Nephrolithiasis [Not Recovered/Not Resolved]
  - Back injury [Recovered/Resolved]
  - Back injury [Unknown]
  - Back pain [Recovering/Resolving]
  - Fall [Recovering/Resolving]

NARRATIVE: CASE EVENT DATE: 20210628
